FAERS Safety Report 7631915-9 (Version None)
Quarter: 2011Q3

REPORT INFORMATION
  Report Type: 
  Country: None (occurrence: None)
  Receive Date: 20110725
  Receipt Date: 20110509
  Transmission Date: 20111222
  Serious: No
  Sender: FDA-Public Use
  Company Number: US-BRISTOL-MYERS SQUIBB COMPANY-15729056

PATIENT
  Age: 56 Year
  Sex: Female

DRUGS (9)
  1. COUMADIN [Suspect]
     Indication: DEEP VEIN THROMBOSIS
     Dates: start: 19980101
  2. RAMIPRIL [Concomitant]
  3. SIMVASTATIN [Concomitant]
  4. VITAMIN D [Concomitant]
  5. CALCIUM + VITAMIN D [Concomitant]
     Dosage: CALCIUM 1200 MG + D TWICE DAILY
  6. COUMADIN [Suspect]
     Indication: PROTEIN C DEFICIENCY
     Dates: start: 19980101
  7. ASPIRIN [Concomitant]
  8. ALENDRONATE SODIUM [Concomitant]
  9. ASCORBIC ACID [Concomitant]

REACTIONS (2)
  - INTERNATIONAL NORMALISED RATIO INCREASED [None]
  - CONTUSION [None]
